FAERS Safety Report 4933671-1 (Version None)
Quarter: 2006Q1

REPORT INFORMATION
  Report Type: 
  Country: None (occurrence: None)
  Receive Date: 20060306
  Receipt Date: 20060220
  Transmission Date: 20060701
  Serious: Yes (Life-Threatening)
  Sender: FDA-Public Use
  Company Number: GB-GLAXOSMITHKLINE-B0413701A

PATIENT
  Age: 42 Year
  Sex: Female

DRUGS (2)
  1. NYTOL [Suspect]
     Indication: INSOMNIA
     Dosage: 1TAB PER DAY
     Route: 048
     Dates: start: 20060116
  2. VALPROATE SODIUM [Concomitant]
     Indication: EPILEPSY
     Dosage: 300MG TWICE PER DAY
     Route: 048

REACTIONS (2)
  - GRAND MAL CONVULSION [None]
  - HYPOXIA [None]
